FAERS Safety Report 9360875 (Version 1)
Quarter: 2013Q2

REPORT INFORMATION
  Report Type: Spontaneous
  Country: US (occurrence: None)
  Receive Date: 20130618
  Receipt Date: 20130618
  Transmission Date: 20140414
  Serious: Yes (Other)
  Sender: FDA-Public Use
  Company Number: ADR-2013212085

PATIENT
  Age: 12 Year
  Sex: Male

DRUGS (1)
  1. SERTRALINE [Suspect]
     Indication: DEPRESSION
     Dosage: 25 MG, 50MG?

REACTIONS (4)
  - Serotonin syndrome [None]
  - Homicidal ideation [None]
  - Condition aggravated [None]
  - Aggression [None]
